FAERS Safety Report 15160344 (Version 1)
Quarter: 2018Q3

REPORT INFORMATION
  Report Type: Spontaneous
  Country: US (occurrence: US)
  Receive Date: 20180621
  Receipt Date: 20180621
  Transmission Date: 20181010
  Serious: No
  Sender: FDA-Public Use
  Company Number: None

PATIENT
  Age: 56 Year
  Sex: Male

DRUGS (1)
  1. COSENTYX [Suspect]
     Active Substance: SECUKINUMAB
     Indication: SQUAMOUS CELL CARCINOMA
     Dosage: OTHER FREQUENCY:EVERY 4 WEEKS ;??2 PENS (300 MG) EVERY 4 WEEKS, SUBCUTANEOUSLY
     Route: 058
     Dates: start: 20180202

REACTIONS (1)
  - Malaise [None]

NARRATIVE: CASE EVENT DATE: 20180620
